FAERS Safety Report 7561014-6 (Version None)
Quarter: 2011Q2

REPORT INFORMATION
  Report Type: 
  Country: None (occurrence: None)
  Receive Date: 20110621
  Receipt Date: 20110120
  Transmission Date: 20111010
  Serious: No
  Sender: FDA-Public Use
  Company Number: US-ASTRAZENECA-2011SE03949

PATIENT
  Age: 48 Year
  Sex: Male

DRUGS (2)
  1. ATACAND HCT [Suspect]
     Indication: HYPERTENSION
     Dosage: 32/25 MG
     Route: 048
  2. ATACAND HCT [Suspect]
     Dosage: 32/12.5 MG ONCE DAILY
     Route: 048
     Dates: start: 20110119

REACTIONS (1)
  - DRUG INTOLERANCE [None]
